FAERS Safety Report 9301328 (Version 2)
Quarter: 2013Q3

REPORT INFORMATION
  Report Type: Spontaneous
  Country: IT (occurrence: IT)
  Receive Date: 20130521
  Receipt Date: 20130701
  Transmission Date: 20140515
  Serious: Yes (Hospitalization)
  Sender: FDA-Public Use
  Company Number: IT-BAYER-2013-060024

PATIENT
  Age: 37 Year
  Sex: Male

DRUGS (9)
  1. CIPROFLOXACIN [Concomitant]
     Indication: URINARY TRACT INFECTION
     Dosage: DAILY DOSE 1000 MG
     Route: 048
  2. TAPENTADOL [Concomitant]
     Dosage: DAILY DOSE 100 MG
     Route: 048
  3. LASITONE [Concomitant]
     Dosage: UNK
  4. LYRICA [Concomitant]
     Dosage: DAILY DOSE 75 MG
     Route: 048
  5. ACETYLSALICYLIC ACID({=100 MG) [Suspect]
     Indication: MYOCARDIAL ISCHAEMIA
     Dosage: 100 MG, QD
     Route: 048
     Dates: start: 20121001, end: 20130125
  6. COUMADIN [Suspect]
     Indication: ATRIAL FIBRILLATION
     Dosage: 5 MG, PRN
     Route: 048
     Dates: start: 20121001, end: 20130125
  7. RAMIPRIL [Concomitant]
     Indication: HYPERTENSION
     Dosage: UNK
  8. AMIODARONE [Concomitant]
     Dosage: DAILY DOSE 200 MG
     Route: 048
  9. BISOPROLOL [Concomitant]
     Indication: HYPERTENSION
     Dosage: DAILY DOSE 1.25 MG
     Route: 048

REACTIONS (2)
  - Anaemia [Unknown]
  - Asthenia [Unknown]
